FAERS Safety Report 20277463 (Version 1)
Quarter: 2022Q1

REPORT INFORMATION
  Report Type: Spontaneous
  Country: US (occurrence: US)
  Receive Date: 20220102
  Receipt Date: 20220102
  Transmission Date: 20220423
  Serious: Yes (Death, Hospitalization)
  Sender: FDA-Public Use
  Company Number: US-STRIDES ARCOLAB LIMITED-2021SP031708

PATIENT
  Age: 25 Year
  Sex: Male

DRUGS (5)
  1. TACROLIMUS [Suspect]
     Active Substance: TACROLIMUS
     Indication: Heart transplant
     Dosage: UNK
     Route: 065
  2. PREDNISOLONE [Suspect]
     Active Substance: PREDNISOLONE
     Indication: Heart transplant
     Dosage: UNK, LOW DOSE
     Route: 065
  3. MYCOPHENOLATE MOFETIL [Suspect]
     Active Substance: MYCOPHENOLATE MOFETIL
     Indication: Heart transplant
     Dosage: UNK
     Route: 065
  4. CEFEPIME [Concomitant]
     Active Substance: CEFEPIME HYDROCHLORIDE
     Indication: Osteomyelitis
     Dosage: UNK, 6 WEEKS COURSE
     Route: 042
  5. VANCOMYCIN [Concomitant]
     Active Substance: VANCOMYCIN
     Indication: Osteomyelitis
     Dosage: UNK, 6 WEEKS COURSE
     Route: 042

REACTIONS (11)
  - Small intestinal obstruction [Fatal]
  - Pneumoperitoneum [Fatal]
  - Hypothermia [Fatal]
  - Lactic acidosis [Fatal]
  - Disseminated mucormycosis [Fatal]
  - Gastrointestinal mucormycosis [Fatal]
  - Postoperative thoracic procedure complication [Unknown]
  - Corynebacterium infection [Unknown]
  - Pseudomonas infection [Unknown]
  - Candida infection [Unknown]
  - Mediastinitis [Unknown]
